FAERS Safety Report 11681112 (Version 2)
Quarter: 2015Q4

REPORT INFORMATION
  Report Type: Spontaneous
  Country: US (occurrence: US)
  Receive Date: 20151027
  Receipt Date: 20151104
  Transmission Date: 20160304
  Serious: No
  Sender: FDA-Public Use
  Company Number: US-ELI_LILLY_AND_COMPANY-US201007005373

PATIENT
  Sex: Female

DRUGS (1)
  1. FORTEO [Suspect]
     Active Substance: TERIPARATIDE
     Indication: OSTEOPOROSIS
     Dosage: UNK, DAILY (1/D)
     Dates: start: 20100616

REACTIONS (7)
  - Dysstasia [Unknown]
  - Bone pain [Unknown]
  - Nausea [Unknown]
  - Discomfort [Unknown]
  - Decreased appetite [Unknown]
  - Drug intolerance [Unknown]
  - Drug dose omission [Unknown]
